FAERS Safety Report 10641921 (Version 2)
Quarter: 2014Q4

REPORT INFORMATION
  Report Type: Spontaneous
  Country: US (occurrence: US)
  Receive Date: 20141209
  Receipt Date: 20141231
  Transmission Date: 20150529
  Serious: No
  Sender: FDA-Public Use
  Company Number: US-GILEAD-2014-0125687

PATIENT
  Age: 56 Year
  Sex: Female

DRUGS (2)
  1. LETAIRIS [Suspect]
     Active Substance: AMBRISENTAN
     Indication: PRODUCT USED FOR UNKNOWN INDICATION
     Dosage: 5 MG, QD
     Route: 065
     Dates: start: 20141115
  2. LETAIRIS [Suspect]
     Active Substance: AMBRISENTAN
     Dosage: 10 MG, QD
     Route: 065
     Dates: start: 20141114

REACTIONS (7)
  - Fluid retention [Unknown]
  - Dizziness [Unknown]
  - Dyspnoea [Not Recovered/Not Resolved]
  - Weight increased [Recovered/Resolved]
  - Cough [Unknown]
  - Nasal congestion [Unknown]
  - Palpitations [Unknown]
